FAERS Safety Report 6251667-7 (Version None)
Quarter: 2009Q2

REPORT INFORMATION
  Report Type: 
  Country: None (occurrence: None)
  Receive Date: 20090630
  Receipt Date: 20090625
  Transmission Date: 20091009
  Serious: Yes (Hospitalization)
  Sender: FDA-Public Use
  Company Number: FR-AVENTIS-200912341FR

PATIENT
  Age: 36 Year
  Sex: Male

DRUGS (11)
  1. TORENTAL [Suspect]
     Indication: DRUG USE FOR UNKNOWN INDICATION
     Route: 048
  2. MABTHERA [Suspect]
     Indication: NEPHROTIC SYNDROME
     Route: 042
     Dates: start: 20070201, end: 20080101
  3. CELLCEPT [Suspect]
     Indication: NEPHROTIC SYNDROME
     Route: 048
     Dates: start: 20080101
  4. ALLOPURINOL [Suspect]
     Indication: DRUG USE FOR UNKNOWN INDICATION
     Route: 048
  5. ESIDRIX [Suspect]
     Indication: DRUG USE FOR UNKNOWN INDICATION
     Route: 048
  6. PRAZOSIN HCL [Suspect]
     Indication: DRUG USE FOR UNKNOWN INDICATION
     Route: 048
  7. EUPRESSYL                          /00631801/ [Suspect]
     Indication: DRUG USE FOR UNKNOWN INDICATION
     Route: 048
  8. OMEPRAZOLE [Suspect]
     Indication: DRUG USE FOR UNKNOWN INDICATION
     Route: 048
  9. PRINIVIL [Suspect]
     Indication: DRUG USE FOR UNKNOWN INDICATION
     Route: 048
  10. DEDROGYL [Suspect]
     Indication: DRUG USE FOR UNKNOWN INDICATION
     Route: 048
  11. CALTRATE                           /00108001/ [Suspect]
     Indication: DRUG USE FOR UNKNOWN INDICATION
     Route: 048

REACTIONS (1)
  - SARCOIDOSIS [None]
